FAERS Safety Report 9709304 (Version 2)
Quarter: 2014Q1

REPORT INFORMATION
  Report Type: Report from Study
  Country: NL (occurrence: NL)
  Receive Date: 20131125
  Receipt Date: 20140109
  Transmission Date: 20141002
  Serious: Yes (Other)
  Sender: FDA-Public Use
  Company Number: NL-BAXTER-2013BAX045382

PATIENT
  Age: 77 Year
  Sex: Female

DRUGS (8)
  1. GAMMAGARD S/D 10, POEDER VOOR INFUSIEVLOEISTOF [Suspect]
     Indication: SECONDARY IMMUNODEFICIENCY
     Route: 042
     Dates: start: 20131023, end: 20131023
  2. GAMMAGARD S/D 10, POEDER VOOR INFUSIEVLOEISTOF [Suspect]
     Route: 042
     Dates: start: 20131113, end: 20131113
  3. GAMMAGARD S/D 10, POEDER VOOR INFUSIEVLOEISTOF [Suspect]
     Route: 042
     Dates: start: 20131204, end: 20131204
  4. GAMMAGARD S/D 10, POEDER VOOR INFUSIEVLOEISTOF [Suspect]
     Route: 042
     Dates: start: 20131231, end: 20131231
  5. GAMMAGARD S/D 5, POEDER VOOR INFUSIEVLOEISTOF [Suspect]
     Indication: SECONDARY IMMUNODEFICIENCY
     Route: 042
     Dates: start: 20131023, end: 20131023
  6. GAMMAGARD S/D 5, POEDER VOOR INFUSIEVLOEISTOF [Suspect]
     Route: 042
     Dates: start: 20131113, end: 20131113
  7. GAMMAGARD S/D 5, POEDER VOOR INFUSIEVLOEISTOF [Suspect]
     Route: 042
     Dates: start: 20131204, end: 20131204
  8. GAMMAGARD S/D 5, POEDER VOOR INFUSIEVLOEISTOF [Suspect]
     Route: 042
     Dates: start: 20131231, end: 20131231

REACTIONS (2)
  - Hip fracture [Recovering/Resolving]
  - Confusion postoperative [Not Recovered/Not Resolved]
